FAERS Safety Report 18587693 (Version 1)
Quarter: 2020Q4

REPORT INFORMATION
  Report Type: Spontaneous
  Country: US (occurrence: US)
  Receive Date: 20201207
  Receipt Date: 20201207
  Transmission Date: 20210114
  Serious: No
  Sender: FDA-Public Use
  Company Number: US-NOVOPROD-711493

PATIENT
  Age: 65 Year
  Sex: Female

DRUGS (2)
  1. NOVOLIN 70/30 [Suspect]
     Active Substance: INSULIN HUMAN
     Indication: DIABETES MELLITUS
     Dosage: 35 IU, QD (20 UNITS IN THE AM AND 15 UNITS IN THE AFTERNOON)
     Route: 058
     Dates: start: 202001
  2. NOVOLIN 70/30 [Suspect]
     Active Substance: INSULIN HUMAN
     Dosage: 35 IU, QD (20 UNITS IN THE AM AND 15 UNITS IN THE AFTERNOON)
     Route: 058
     Dates: end: 20200211

REACTIONS (2)
  - Blood glucose increased [Not Recovered/Not Resolved]
  - Malaise [Unknown]

NARRATIVE: CASE EVENT DATE: 202001
